FAERS Safety Report 6413618-1 (Version None)
Quarter: 2009Q4

REPORT INFORMATION
  Report Type: 
  Country: None (occurrence: None)
  Receive Date: 20091023
  Receipt Date: 20091023
  Transmission Date: 20100525
  Serious: No
  Sender: FDA-Public Use
  Company Number: None

PATIENT

DRUGS (5)
  1. CYMBALTA [Suspect]
  2. SEROQUEL [Concomitant]
  3. TRILEPTAL [Concomitant]
  4. AMBIEN CR [Concomitant]
  5. PREMARIN [Concomitant]

REACTIONS (6)
  - CHILLS [None]
  - COLD SWEAT [None]
  - DRUG WITHDRAWAL SYNDROME [None]
  - NAUSEA [None]
  - PARAESTHESIA [None]
  - VOMITING [None]
